FAERS Safety Report 9368663 (Version 1)
Quarter: 2013Q2

REPORT INFORMATION
  Report Type: Spontaneous
  Country: US (occurrence: US)
  Receive Date: 20130626
  Receipt Date: 20130626
  Transmission Date: 20140414
  Serious: No
  Sender: FDA-Public Use
  Company Number: US-ASTELLAS-2013US000600

PATIENT
  Sex: Female

DRUGS (4)
  1. VESICARE [Suspect]
     Indication: PRODUCT USED FOR UNKNOWN INDICATION
     Dosage: UNK
     Route: 048
     Dates: start: 201212
  2. CYMBALTA [Interacting]
     Indication: DEPRESSION
     Dosage: UNK
     Route: 065
  3. REMERON [Suspect]
     Indication: DEPRESSION
     Dosage: UNK
     Route: 065
  4. OXYCODONE [Concomitant]
     Indication: PRODUCT USED FOR UNKNOWN INDICATION
     Dosage: UNK
     Route: 065

REACTIONS (3)
  - Depression [Unknown]
  - Drug interaction [Unknown]
  - Nausea [Unknown]
